FAERS Safety Report 9044040 (Version 1)
Quarter: 2013Q1

REPORT INFORMATION
  Report Type: Spontaneous
  Country: US (occurrence: US)
  Receive Date: 20130130
  Receipt Date: 20130130
  Transmission Date: 20140127
  Serious: Yes (Other)
  Sender: FDA-Public Use
  Company Number: US-JNJFOC-20130114358

PATIENT
  Age: 38 Year
  Sex: Female
  Weight: 58.97 kg

DRUGS (11)
  1. EXTRA STRENGTH TYLENOL [Suspect]
     Indication: PAIN
     Dosage: 2 CAPLETS EVERY 4 HOURS (ABOUT 10 DOSES TOTAL)
     Route: 048
     Dates: start: 20130119, end: 20130120
  2. KEPPRA [Concomitant]
     Indication: CONVULSION
     Dosage: SINCE 5 YEARS
     Route: 065
  3. SAVELLA [Concomitant]
     Indication: PAIN MANAGEMENT
     Dosage: SINCE 1 YEAR
     Route: 065
  4. EFFEXOR [Concomitant]
     Indication: ANTIDEPRESSANT THERAPY
     Dosage: SINCE 4 YEARS
     Route: 065
  5. ZANAFLEX [Concomitant]
     Indication: CONVULSION
     Dosage: 6-9 MG SINCE 4 YEARS
     Route: 065
  6. ZANAFLEX [Concomitant]
     Indication: MUSCLE RELAXANT THERAPY
     Dosage: 6-9 MG SINCE 4 YEARS
     Route: 065
  7. BACLOFEN [Concomitant]
     Indication: TREMOR
     Dosage: SINCE 10 YEARS
     Route: 065
  8. SOMA [Concomitant]
     Indication: MUSCLE RELAXANT THERAPY
     Dosage: SINCE 1 YEAR
     Route: 065
  9. ADVIL [Concomitant]
     Indication: PAIN
     Dosage: SINCE 10 YEARS
     Route: 065
  10. ULTRAM [Concomitant]
     Indication: PAIN
     Dosage: SINCE 5 YEARS
     Route: 065
  11. PROMETRIUM [Concomitant]
     Route: 065

REACTIONS (6)
  - Convulsion [Unknown]
  - Product counterfeit [Unknown]
  - Headache [Unknown]
  - Malaise [Recovered/Resolved]
  - Vomiting [Recovered/Resolved]
  - Overdose [Recovered/Resolved]
